FAERS Safety Report 25882473 (Version 1)
Quarter: 2025Q4

REPORT INFORMATION
  Report Type: Spontaneous
  Country: EU (occurrence: EU)
  Receive Date: 20251006
  Receipt Date: 20251006
  Transmission Date: 20260118
  Serious: Yes (Other)
  Sender: TEVA
  Company Number: None

PATIENT
  Age: 69 Year
  Sex: Male

DRUGS (3)
  1. OXAZEPAM [Suspect]
     Active Substance: OXAZEPAM
     Indication: Product used for unknown indication
     Route: 048
     Dates: start: 20250719, end: 20250719
  2. BRINTELLIX [Suspect]
     Active Substance: VORTIOXETINE HYDROBROMIDE
     Indication: Product used for unknown indication
     Dosage: 1 DF = 1 TABLET
     Route: 048
     Dates: start: 20250719, end: 20250719
  3. CLOZAPINE [Suspect]
     Active Substance: CLOZAPINE
     Indication: Product used for unknown indication
     Route: 048
     Dates: start: 20250719, end: 20250719

REACTIONS (2)
  - Suicide attempt [Unknown]
  - Somnolence [Unknown]

NARRATIVE: CASE EVENT DATE: 20250719
